FAERS Safety Report 7152819-4 (Version None)
Quarter: 2010Q4

REPORT INFORMATION
  Report Type: 
  Country: None (occurrence: None)
  Receive Date: 20101209
  Receipt Date: 20101209
  Transmission Date: 20110411
  Serious: Yes (Hospitalization)
  Sender: FDA-Public Use
  Company Number: None

PATIENT
  Sex: Female
  Weight: 74.3899 kg

DRUGS (2)
  1. FOSAMAX [Suspect]
     Indication: OSTEOPOROSIS
     Dates: start: 20030101, end: 20070101
  2. ALENDRONATE 2008 - 2010 [Suspect]
     Dosage: ONCE WEEKLY
     Dates: start: 20080101, end: 20100101

REACTIONS (2)
  - FEMUR FRACTURE [None]
  - PAIN [None]
